FAERS Safety Report 21165952 (Version 2)
Quarter: 2022Q3

REPORT INFORMATION
  Report Type: Spontaneous
  Country: US (occurrence: US)
  Receive Date: 20220803
  Receipt Date: 20220812
  Transmission Date: 20221026
  Serious: Yes (Life-Threatening, Hospitalization)
  Sender: FDA-Public Use
  Company Number: US-drreddys-LIT/USA/22/0152982

PATIENT
  Age: 68 Year
  Sex: Female

DRUGS (1)
  1. DOBUTAMINE HYDROCHLORIDE [Suspect]
     Active Substance: DOBUTAMINE HYDROCHLORIDE
     Indication: Cardiogenic shock

REACTIONS (4)
  - Drug ineffective [Unknown]
  - Cardiogenic shock [Recovering/Resolving]
  - Condition aggravated [Recovering/Resolving]
  - Acute pulmonary oedema [Unknown]
